FAERS Safety Report 6437489-2 (Version None)
Quarter: 2009Q4

REPORT INFORMATION
  Report Type: 
  Country: None (occurrence: None)
  Receive Date: 20091110
  Receipt Date: 20080513
  Transmission Date: 20100525
  Serious: No
  Sender: FDA-Public Use
  Company Number: AEUSA200800118

PATIENT
  Age: 79 Year
  Sex: Male
  Weight: 66 kg

DRUGS (18)
  1. GAMUNEX [Suspect]
     Indication: CHRONIC LYMPHOCYTIC LEUKAEMIA
     Dosage: 40 GM; 1X; IV
     Route: 042
     Dates: start: 20080509, end: 20080509
  2. GAMUNEX [Suspect]
     Indication: HYPOGAMMAGLOBULINAEMIA
     Dosage: 40 GM; 1X; IV
     Route: 042
     Dates: start: 20080509, end: 20080509
  3. CHLORAMBUCIL [Concomitant]
  4. FLUDARABINE [Concomitant]
  5. EPOGEN [Concomitant]
  6. TYLENOL (CAPLET) [Concomitant]
  7. DIGOXIN [Concomitant]
  8. BENADRYL [Concomitant]
  9. NEXIUM /01479303/ [Concomitant]
  10. GLIPIZIDE [Concomitant]
  11. INSULIN [Concomitant]
  12. METFORMIN HCL [Concomitant]
  13. SPIRONOLACTONE [Concomitant]
  14. VERAPAMIL [Concomitant]
  15. DEXTROSE [Concomitant]
  16. ROBITUSSIN /00288801/ [Concomitant]
  17. GLUCAGON [Concomitant]
  18. RITUXAN [Concomitant]

REACTIONS (3)
  - CELL MARKER INCREASED [None]
  - COOMBS TEST POSITIVE [None]
  - RHESUS ANTIBODIES POSITIVE [None]
